FAERS Safety Report 8842448 (Version 1)
Quarter: 2012Q4

REPORT INFORMATION
  Report Type: 
  Country: BE (occurrence: BE)
  Receive Date: 20121016
  Receipt Date: 20121016
  Transmission Date: 20130627
  Serious: Yes (Hospitalization)
  Sender: FDA-Public Use
  Company Number: BE-WATSON-2012-17201

PATIENT
  Age: 38 Year
  Sex: Female

DRUGS (1)
  1. SALBUTAMOL (UNKNOWN) [Suspect]
     Indication: ASTHMA
     Dosage: 2 puffs
     Route: 055

REACTIONS (1)
  - Acute myocardial infarction [Recovered/Resolved]
